FAERS Safety Report 4645963-4 (Version None)
Quarter: 2005Q2

REPORT INFORMATION
  Report Type: 
  Country: None (occurrence: None)
  Receive Date: 20050425
  Receipt Date: 20050418
  Transmission Date: 20051028
  Serious: Yes (Other)
  Sender: FDA-Public Use
  Company Number: 200510774BWH

PATIENT
  Age: 3 Year
  Sex: Female

DRUGS (2)
  1. CIPRO [Suspect]
     Indication: PNEUMONIA ASPIRATION
     Dosage: 250 MG, BID, ORAL
     Route: 048
  2. PREDNISONE [Concomitant]

REACTIONS (9)
  - DYSPNOEA [None]
  - ERYTHEMA [None]
  - FLUSHING [None]
  - HYPERSENSITIVITY [None]
  - LOCAL SWELLING [None]
  - RASH [None]
  - SUNBURN [None]
  - SWELLING FACE [None]
  - WRONG TECHNIQUE IN DRUG USAGE PROCESS [None]
